FAERS Safety Report 6191000-2 (Version None)
Quarter: 2009Q2

REPORT INFORMATION
  Report Type: 
  Country: None (occurrence: None)
  Receive Date: 20090513
  Receipt Date: 20090504
  Transmission Date: 20091009
  Serious: Yes (Death, Hospitalization)
  Sender: FDA-Public Use
  Company Number: 2009AL002788

PATIENT
  Sex: Male

DRUGS (1)
  1. DIGOXIN [Suspect]
     Dosage: PO
     Route: 048

REACTIONS (10)
  - ANHEDONIA [None]
  - ANOREXIA [None]
  - DIZZINESS [None]
  - ECONOMIC PROBLEM [None]
  - FATIGUE [None]
  - ILL-DEFINED DISORDER [None]
  - MENTAL DISORDER [None]
  - PAIN [None]
  - SYNCOPE [None]
  - THERAPEUTIC AGENT TOXICITY [None]
